FAERS Safety Report 9575234 (Version 1)
Quarter: 2013Q4

REPORT INFORMATION
  Report Type: Spontaneous
  Country: US (occurrence: US)
  Receive Date: 20131001
  Receipt Date: 20131001
  Transmission Date: 20140711
  Serious: Yes (Hospitalization)
  Sender: FDA-Public Use
  Company Number: US-GLAXOSMITHKLINE-A1043492A

PATIENT
  Age: 24 Year
  Sex: Female

DRUGS (3)
  1. WELLBUTRIN [Suspect]
     Indication: MAJOR DEPRESSION
     Dosage: 150MG PER DAY
     Route: 065
  2. PRISTIQ [Suspect]
     Indication: MAJOR DEPRESSION
     Dosage: 50MG PER DAY
     Route: 048
  3. ADDERALL [Suspect]
     Indication: PRODUCT USED FOR UNKNOWN INDICATION
     Dosage: 30MG PER DAY
     Route: 065

REACTIONS (2)
  - Serotonin syndrome [Unknown]
  - Aggression [Recovered/Resolved]
